FAERS Safety Report 6610397-X (Version None)
Quarter: 2010Q1

REPORT INFORMATION
  Report Type: 
  Country: None (occurrence: None)
  Receive Date: 20100302
  Receipt Date: 20100224
  Transmission Date: 20100710
  Serious: Yes (Hospitalization)
  Sender: FDA-Public Use
  Company Number: US-GILEAD-2010-0027294

PATIENT
  Sex: Female

DRUGS (12)
  1. LETAIRIS [Suspect]
     Indication: PULMONARY ARTERIAL HYPERTENSION
     Route: 048
     Dates: start: 20081103
  2. ASPIRIN [Concomitant]
  3. LISINOPIL [Concomitant]
  4. AMLODIPINE [Concomitant]
  5. SYMBICORT [Concomitant]
  6. TYLENOL-500 [Concomitant]
  7. REQUIP [Concomitant]
  8. SEROQUEL [Concomitant]
  9. PAXIL [Concomitant]
  10. TEMAZEPAM [Concomitant]
  11. LEVOTHYROXINE SODIUM [Concomitant]
  12. FERROUS SULFATE TAB [Concomitant]

REACTIONS (2)
  - ANAEMIA [None]
  - INTESTINAL OBSTRUCTION [None]
